FAERS Safety Report 5524522-5 (Version None)
Quarter: 2007Q4

REPORT INFORMATION
  Report Type: 
  Country: None (occurrence: None)
  Receive Date: 20071122
  Receipt Date: 20071115
  Transmission Date: 20080405
  Serious: Yes (Disabling)
  Sender: FDA-Public Use
  Company Number: PHEH2007US14918

PATIENT
  Sex: Female

DRUGS (5)
  1. FEMARA [Suspect]
     Indication: NEOPLASM MALIGNANT
     Dosage: 2.5 MG, QD
     Dates: start: 20040401
  2. HYDROCHLOROTHIAZIDE [Concomitant]
     Dosage: 25 MG, QD
  3. PROTONIX [Concomitant]
     Dosage: 40 MG, QD
  4. LEXAPRO [Concomitant]
  5. SYNTHROID [Concomitant]

REACTIONS (8)
  - ALOPECIA [None]
  - BONE PAIN [None]
  - FALL [None]
  - GAIT DISTURBANCE [None]
  - HEADACHE [None]
  - HOT FLUSH [None]
  - OSTEOARTHRITIS [None]
  - SPINAL OSTEOARTHRITIS [None]
